FAERS Safety Report 13183932 (Version 1)
Quarter: 2017Q1

REPORT INFORMATION
  Report Type: Spontaneous
  Country: US (occurrence: US)
  Receive Date: 20170203
  Receipt Date: 20170203
  Transmission Date: 20170428
  Serious: No
  Sender: FDA-Public Use
  Company Number: US-BAYER-2017-021560

PATIENT
  Age: 67 Year
  Sex: Female
  Weight: 70 kg

DRUGS (7)
  1. ALEVE [Suspect]
     Active Substance: NAPROXEN SODIUM
     Indication: PAIN
     Dosage: 1 DF, QD
     Route: 048
     Dates: start: 2014
  2. LYRICA [Concomitant]
     Active Substance: PREGABALIN
  3. TRUVADA [Concomitant]
     Active Substance: EMTRICITABINE\TENOFOVIR DISOPROXIL FUMARATE
  4. HUMALOG [Concomitant]
     Active Substance: INSULIN LISPRO
  5. LANTUS [Concomitant]
     Active Substance: INSULIN GLARGINE
  6. INTELENCE [Concomitant]
     Active Substance: ETRAVIRINE
  7. ANTICOAGULANT SODIUM CITRATE [Concomitant]
     Active Substance: SODIUM CITRATE

REACTIONS (3)
  - Device adhesion issue [Unknown]
  - Product use issue [Unknown]
  - Device ineffective [Unknown]
